FAERS Safety Report 5463049-6 (Version None)
Quarter: 2007Q3

REPORT INFORMATION
  Report Type: 
  Country: None (occurrence: None)
  Receive Date: 20070918
  Receipt Date: 20070918
  Transmission Date: 20080115
  Serious: Yes (Hospitalization)
  Sender: FDA-Public Use
  Company Number: None

PATIENT
  Sex: Male
  Weight: 38 kg

DRUGS (25)
  1. 5% NAF WHITE VARNISH OMNI DENTAL, 3M [Suspect]
     Indication: DENTAL TREATMENT
     Dosage: ONE TIME TOP
     Route: 061
     Dates: start: 20070913, end: 20070913
  2. KEPPRA [Concomitant]
  3. DILANTIN [Concomitant]
  4. MYSOLINE [Concomitant]
  5. TRANXENE [Concomitant]
  6. PREDNISONE [Concomitant]
  7. CARNITOR [Concomitant]
  8. FLOVENT [Concomitant]
  9. CLARITIN [Concomitant]
  10. ZANTAC [Concomitant]
  11. ACIDOPHILUS [Concomitant]
  12. WHOLE LIFE CALCIUM/MAGNESIUM/ZINC LIQUID [Concomitant]
  13. FLUORIDE DROPS [Concomitant]
  14. ASCORBIC ACID [Concomitant]
  15. LACTULOSE [Concomitant]
  16. MIRALAX [Concomitant]
  17. NASACORT AQ [Concomitant]
  18. INTAL [Concomitant]
  19. GEMTAMICIN NEBULIZATION [Concomitant]
  20. ACT FLUORIDE RINSE [Concomitant]
  21. DIASTAT [Concomitant]
  22. ALBUTEROL [Concomitant]
  23. IPRATROPIUM BROMIDE [Concomitant]
  24. TYLENOL (CAPLET) [Concomitant]
  25. MOTRIN [Concomitant]

REACTIONS (2)
  - ANAPHYLACTIC REACTION [None]
  - ANAPHYLACTOID REACTION [None]
